FAERS Safety Report 6237011-X (Version None)
Quarter: 2009Q2

REPORT INFORMATION
  Report Type: 
  Country: None (occurrence: None)
  Receive Date: 20090619
  Receipt Date: 20090320
  Transmission Date: 20091009
  Serious: No
  Sender: FDA-Public Use
  Company Number: US-ASTRAZENECA-2009UW07383

PATIENT
  Sex: Female

DRUGS (4)
  1. SYMBICORT [Suspect]
     Route: 055
  2. ZYRTEC-D 12 HOUR [Concomitant]
  3. AVELOX [Concomitant]
  4. LEVAQUIN [Concomitant]

REACTIONS (3)
  - GLOSSODYNIA [None]
  - LYMPHADENOPATHY [None]
  - MOUTH ULCERATION [None]
